FAERS Safety Report 19152106 (Version 1)
Quarter: 2021Q2

REPORT INFORMATION
  Report Type: Spontaneous
  Country: US (occurrence: US)
  Receive Date: 20210416
  Receipt Date: 20210416
  Transmission Date: 20210717
  Serious: Yes (Death)
  Sender: FDA-Public Use
  Company Number: None

PATIENT
  Sex: Male

DRUGS (11)
  1. WARFARIN [Concomitant]
     Active Substance: WARFARIN
  2. PROAIR HFA [Concomitant]
     Active Substance: ALBUTEROL SULFATE
  3. LEVOTHYROXIN [Concomitant]
     Active Substance: LEVOTHYROXINE
  4. PANTOPROZOLE [Concomitant]
     Active Substance: PANTOPRAZOLE SODIUM
  5. SULFASALAZINE DELAYED?RELEASE [Concomitant]
     Active Substance: SULFASALAZINE
  6. ESBRIET [Suspect]
     Active Substance: PIRFENIDONE
     Indication: PULMONARY FIBROSIS
     Route: 048
     Dates: start: 20201201, end: 20210414
  7. CARVEDILOL. [Concomitant]
     Active Substance: CARVEDILOL
  8. DILTIAZEM ER [Concomitant]
     Active Substance: DILTIAZEM
  9. ELIQUIS [Concomitant]
     Active Substance: APIXABAN
  10. SIMVASTATIN. [Concomitant]
     Active Substance: SIMVASTATIN
  11. SOTALOL HCL [Concomitant]
     Active Substance: SOTALOL

REACTIONS (1)
  - Death [None]
